FAERS Safety Report 8298123-2 (Version None)
Quarter: 2012Q2

REPORT INFORMATION
  Report Type: 
  Country: None (occurrence: None)
  Receive Date: 20120419
  Receipt Date: 20120410
  Transmission Date: 20120825
  Serious: Yes (Life-Threatening, Hospitalization)
  Sender: FDA-Public Use
  Company Number: US-ROCHE-1058105

PATIENT
  Age: 58 Year
  Sex: Female
  Weight: 104.97 kg

DRUGS (20)
  1. DEXAMETHASONE SODIUM PHOSPHATE [Concomitant]
     Route: 048
     Dates: start: 20120403
  2. DIOVAN HCT [Concomitant]
     Dosage: 160 MG-12.5 MG
     Route: 048
     Dates: start: 20120117, end: 20120403
  3. HYDRALAZINE HCL [Concomitant]
     Dosage: WITH FOOD PRN INFUSION
     Route: 048
  4. REGLAN [Concomitant]
     Dates: start: 20111028
  5. ACTEMRA [Suspect]
     Indication: RHEUMATOID ARTHRITIS
  6. DEXAMETHASONE SODIUM PHOSPHATE [Concomitant]
     Route: 048
     Dates: start: 20120207, end: 20120403
  7. FLUCONAZOLE [Concomitant]
     Dates: start: 20111028, end: 20120403
  8. PIROXICAM [Concomitant]
     Route: 048
     Dates: start: 20090915, end: 20120403
  9. METHOTREXATE SODIUM [Concomitant]
     Dosage: 10 TAB. PER WEEK  (25 MG)
     Route: 048
     Dates: start: 20111129, end: 20120403
  10. NORCO [Concomitant]
     Dosage: 10 MG-325 MG
     Dates: start: 20111028
  11. FLEXERIL [Concomitant]
     Route: 048
     Dates: start: 20111107, end: 20120403
  12. FOLIC ACID [Concomitant]
     Route: 048
     Dates: start: 20110607, end: 20120403
  13. AMBIEN [Concomitant]
     Dates: start: 20090915
  14. RESTASIS [Concomitant]
     Dates: start: 20120403
  15. ZOCOR [Concomitant]
     Route: 048
  16. ESTRADIOL [Concomitant]
     Route: 048
     Dates: start: 20100824, end: 20120403
  17. TOPAMAX [Concomitant]
     Dates: start: 20111028, end: 20120403
  18. CARAFATE [Concomitant]
     Dates: start: 20111028
  19. POTASSIUM CHLORIDE [Concomitant]
     Route: 048
     Dates: start: 20080608
  20. NEXIUM [Concomitant]

REACTIONS (4)
  - RESPIRATORY FAILURE [None]
  - RENAL FAILURE ACUTE [None]
  - PNEUMONIA ASPIRATION [None]
  - HYPOTENSION [None]
